FAERS Safety Report 10147469 (Version 3)
Quarter: 2014Q2

REPORT INFORMATION
  Report Type: Spontaneous
  Country: US (occurrence: US)
  Receive Date: 20140501
  Receipt Date: 20140507
  Transmission Date: 20141212
  Serious: Yes (Other)
  Sender: FDA-Public Use
  Company Number: CHPA2014US005448

PATIENT
  Age: 83 Year
  Sex: Male

DRUGS (2)
  1. VOLTAREN GEL [Suspect]
     Indication: ARTHRALGIA
     Dosage: WITH FINGER, UNK
     Route: 061
     Dates: start: 2012
  2. VOLTAREN GEL [Suspect]
     Indication: OFF LABEL USE

REACTIONS (4)
  - Precancerous cells present [Not Recovered/Not Resolved]
  - Musculoskeletal discomfort [Unknown]
  - Therapeutic response changed [Unknown]
  - Drug administered at inappropriate site [Unknown]
